FAERS Safety Report 6803315-2 (Version None)
Quarter: 2010Q2

REPORT INFORMATION
  Report Type: 
  Country: None (occurrence: None)
  Receive Date: 20100628
  Receipt Date: 20100622
  Transmission Date: 20101027
  Serious: Yes (Hospitalization)
  Sender: FDA-Public Use
  Company Number: FR-SANOFI-AVENTIS-2010SA036038

PATIENT
  Age: 71 Year
  Sex: Female
  Weight: 54 kg

DRUGS (10)
  1. AFLIBERCEPT [Suspect]
     Route: 042
     Dates: start: 20090121, end: 20090121
  2. AFLIBERCEPT [Suspect]
     Route: 042
     Dates: start: 20091019, end: 20091019
  3. TAXOTERE [Suspect]
     Route: 042
     Dates: start: 20090121, end: 20090121
  4. TAXOTERE [Suspect]
     Route: 042
     Dates: start: 20091019, end: 20091019
  5. DOLIPRANE [Concomitant]
     Dates: start: 20090318
  6. DI ANTALVIC [Concomitant]
     Route: 048
     Dates: start: 20090902
  7. TRIATEC [Concomitant]
     Route: 048
     Dates: start: 20091116
  8. NORSET [Concomitant]
     Dates: start: 20091001
  9. LOGIRENE [Concomitant]
     Route: 048
     Dates: start: 20091123
  10. ESOMEPRAZOLE [Concomitant]
     Route: 048
     Dates: start: 20091014

REACTIONS (2)
  - PROTEINURIA [None]
  - URINARY TRACT INFECTION [None]
